FAERS Safety Report 23387396 (Version 1)
Quarter: 2024Q1

REPORT INFORMATION
  Report Type: Spontaneous
  Country: AU (occurrence: AU)
  Receive Date: 20240110
  Receipt Date: 20240110
  Transmission Date: 20240410
  Serious: Yes (Other)
  Sender: FDA-Public Use
  Company Number: AU-MYLANLABS-2024M1002700

PATIENT
  Age: 8 Year
  Sex: Female

DRUGS (1)
  1. SULFAMETHOXAZOLE\TRIMETHOPRIM [Suspect]
     Active Substance: SULFAMETHOXAZOLE\TRIMETHOPRIM
     Indication: Burkholderia pseudomallei infection
     Dosage: UNK
     Route: 048

REACTIONS (4)
  - Rash [Recovered/Resolved]
  - Neutropenia [Unknown]
  - Lip swelling [Unknown]
  - Off label use [Unknown]
